FAERS Safety Report 21307304 (Version 11)
Quarter: 2023Q2

REPORT INFORMATION
  Report Type: Report from Study
  Country: US (occurrence: US)
  Receive Date: 20220908
  Receipt Date: 20230502
  Transmission Date: 20230722
  Serious: Yes (Hospitalization, Other)
  Sender: FDA-Public Use
  Company Number: US-ACORDA-ACO_173419_2022

PATIENT
  Age: 47 Year
  Sex: Female
  Weight: 53.968 kg

DRUGS (16)
  1. AMPYRA [Suspect]
     Active Substance: DALFAMPRIDINE
     Indication: Multiple sclerosis
     Dosage: 10 MILLIGRAM, BID
     Route: 048
     Dates: start: 201203, end: 20230217
  2. AMPYRA [Suspect]
     Active Substance: DALFAMPRIDINE
     Indication: Toxic encephalopathy
  3. MAYZENT [Suspect]
     Active Substance: SIPONIMOD
     Indication: Multiple sclerosis
     Dosage: 2 MILLIGRAM
     Route: 065
  4. VESICARE [Concomitant]
     Active Substance: SOLIFENACIN SUCCINATE
     Indication: Product used for unknown indication
     Dosage: 5 MILLIGRAM
     Route: 065
  5. MYRBETRIQ [Concomitant]
     Active Substance: MIRABEGRON
     Indication: Product used for unknown indication
     Dosage: 25 MILLIGRAM ER 24H
     Route: 065
  6. VITAMINS NOS [Concomitant]
     Active Substance: VITAMINS
     Indication: Product used for unknown indication
     Dosage: UNKNOWN
     Route: 065
  7. BACLOFEN [Concomitant]
     Active Substance: BACLOFEN
     Indication: Product used for unknown indication
     Dosage: 10 MILLIGRAM, BID
     Route: 065
  8. VITAMIN D NOS [Concomitant]
     Active Substance: VITAMIN D NOS
     Indication: Product used for unknown indication
     Dosage: 10 MICROGRAM, 400
     Route: 065
  9. CALCIUM [Concomitant]
     Active Substance: CALCIUM
     Indication: Product used for unknown indication
     Dosage: 500 (1250)
     Route: 065
  10. OTHER THERAPEUTIC PRODUCTS (Birth control) [Concomitant]
     Indication: Product used for unknown indication
     Dosage: LOW DOSE
     Route: 065
  11. BIOTIN [Concomitant]
     Active Substance: BIOTIN
     Indication: Product used for unknown indication
     Dosage: 100 MILLIGRAM
     Route: 065
  12. METHIMAZOLE [Concomitant]
     Active Substance: METHIMAZOLE
     Indication: Product used for unknown indication
     Dosage: UNKNOWN
     Route: 065
  13. TYLENOL [Concomitant]
     Active Substance: ACETAMINOPHEN
     Indication: Product used for unknown indication
     Dosage: UNKNOWN
     Route: 065
  14. COLACE [Concomitant]
     Active Substance: DOCUSATE SODIUM
     Indication: Product used for unknown indication
     Dosage: UNKNOWN
     Route: 065
  15. KEPPRA [Concomitant]
     Active Substance: LEVETIRACETAM
     Indication: Product used for unknown indication
     Dosage: 500 MILLIGRAM
     Route: 065
  16. KEPPRA [Concomitant]
     Active Substance: LEVETIRACETAM
     Dosage: 1000 MILLIGRAM, BID
     Route: 065

REACTIONS (24)
  - Status epilepticus [Recovered/Resolved]
  - Brain fog [Unknown]
  - Seizure [Recovered/Resolved]
  - Seizure [Recovered/Resolved]
  - Seizure [Recovered/Resolved]
  - Seizure [Unknown]
  - Contraindicated product prescribed [Unknown]
  - Therapy interrupted [Unknown]
  - Blood creatinine decreased [Recovered/Resolved]
  - Blood phosphorus decreased [Recovered/Resolved]
  - Protein total decreased [Recovered/Resolved]
  - Blood albumin decreased [Recovered/Resolved]
  - White blood cell count increased [Recovered/Resolved]
  - Atelectasis [Recovered/Resolved]
  - Bone fragmentation [Recovered/Resolved]
  - Neutrophil count increased [Recovered/Resolved]
  - Immature granulocyte count increased [Recovered/Resolved]
  - Lymphocyte count decreased [Recovered/Resolved]
  - Blood glucose increased [Recovered/Resolved]
  - White blood cell count decreased [Recovering/Resolving]
  - Blood potassium decreased [Recovered/Resolved]
  - Protein total decreased [Recovered/Resolved]
  - Blood albumin decreased [Recovered/Resolved]
  - Off label use [Unknown]

NARRATIVE: CASE EVENT DATE: 20220813
